FAERS Safety Report 6612618-6 (Version None)
Quarter: 2010Q1

REPORT INFORMATION
  Report Type: 
  Country: None (occurrence: None)
  Receive Date: 20100303
  Receipt Date: 20100219
  Transmission Date: 20100710
  Serious: Yes (Other)
  Sender: FDA-Public Use
  Company Number: BR-PFIZER INC-2010022023

PATIENT
  Age: 75 Year
  Sex: Male
  Weight: 75 kg

DRUGS (1)
  1. ZITHROMAX [Suspect]
     Indication: EYE INFECTION STAPHYLOCOCCAL
     Dosage: 500 MG, 1X/DAY
     Route: 048
     Dates: start: 20100201, end: 20100201

REACTIONS (2)
  - NO THERAPEUTIC RESPONSE [None]
  - VISUAL ACUITY REDUCED [None]
